FAERS Safety Report 5927697-9 (Version None)
Quarter: 2008Q4

REPORT INFORMATION
  Report Type: 
  Country: None (occurrence: None)
  Receive Date: 20081023
  Receipt Date: 20080822
  Transmission Date: 20090506
  Serious: Yes (Hospitalization)
  Sender: FDA-Public Use
  Company Number: US-ASTRAZENECA-2008UW17255

PATIENT
  Age: 73 Year
  Sex: Female
  Weight: 68 kg

DRUGS (6)
  1. ARIMIDEX [Suspect]
     Indication: BREAST CANCER
     Route: 048
     Dates: start: 20060901
  2. ATENOLOL [Concomitant]
  3. FUROSEMIDE [Concomitant]
  4. FERROUS GLUCONATE [Concomitant]
  5. SIMVASTATIN [Concomitant]
  6. DIAZEPAM [Concomitant]
     Indication: INSOMNIA

REACTIONS (5)
  - ANAEMIA [None]
  - AORTIC VALVE DISEASE [None]
  - JOINT INJURY [None]
  - VOMITING [None]
  - WEIGHT DECREASED [None]
